FAERS Safety Report 5095928-6 (Version None)
Quarter: 2006Q3

REPORT INFORMATION
  Report Type: 
  Country: None (occurrence: None)
  Receive Date: 20060731
  Receipt Date: 20060420
  Transmission Date: 20061208
  Serious: No
  Sender: FDA-Public Use
  Company Number: 2006PV012404

PATIENT
  Age: 68 Year
  Sex: Female

DRUGS (8)
  1. BYETTA [Suspect]
     Indication: DIABETES MELLITUS NON-INSULIN-DEPENDENT
     Dosage: 5 MCG;SC
     Route: 058
     Dates: start: 20060405, end: 20060419
  2. COUMADIN [Suspect]
  3. ARIMIDEX [Concomitant]
  4. MEVACOR [Concomitant]
  5. ASPIRIN [Concomitant]
  6. METOPROLOL TARTRATE [Concomitant]
  7. SYNTHROID [Concomitant]
  8. NEURONTIN [Concomitant]

REACTIONS (2)
  - FATIGUE [None]
  - INTERNATIONAL NORMALISED RATIO INCREASED [None]
